FAERS Safety Report 7297987-9 (Version None)
Quarter: 2011Q1

REPORT INFORMATION
  Report Type: 
  Country: None (occurrence: None)
  Receive Date: 20110217
  Receipt Date: 20110215
  Transmission Date: 20110831
  Serious: No
  Sender: FDA-Public Use
  Company Number: US-PFIZER INC-2011033706

PATIENT
  Sex: Female

DRUGS (5)
  1. RELPAX [Suspect]
     Indication: MIGRAINE
     Dosage: 40 MG, AS NEEDED
     Route: 048
  2. ESTRADIOL [Concomitant]
     Dosage: 1 MG, UNK
  3. DICLOFENAC [Concomitant]
     Dosage: 50 MG, UNK
  4. NORCO [Concomitant]
     Dosage: UNK
  5. ADDERALL 10 [Concomitant]
     Dosage: 10 MG, UNK

REACTIONS (1)
  - DRUG INEFFECTIVE [None]
